FAERS Safety Report 5963784-7 (Version None)
Quarter: 2008Q4

REPORT INFORMATION
  Report Type: 
  Country: None (occurrence: None)
  Receive Date: 20081124
  Receipt Date: 20081118
  Transmission Date: 20090506
  Serious: Yes (Death)
  Sender: FDA-Public Use
  Company Number: JP-ABBOTT-08P-087-0480255-00

PATIENT
  Age: 81 Year
  Sex: Male
  Weight: 43 kg

DRUGS (4)
  1. LEUPROLIDE ACETATE [Suspect]
     Indication: PROSTATE CANCER STAGE II
     Route: 058
     Dates: start: 20060518, end: 20071105
  2. BICALUTAMIDE [Concomitant]
     Indication: PROSTATE CANCER STAGE II
     Route: 048
     Dates: start: 20060511, end: 20070110
  3. TAMSULOSIN HCL [Concomitant]
     Indication: BENIGN PROSTATIC HYPERPLASIA
     Route: 048
     Dates: end: 20071105
  4. PROPIVERINE HYDROCHLORIDE [Concomitant]
     Indication: NEUROGENIC BLADDER
     Route: 048
     Dates: end: 20080107

REACTIONS (1)
  - LUNG NEOPLASM MALIGNANT [None]
